FAERS Safety Report 5897719-2 (Version None)
Quarter: 2008Q3

REPORT INFORMATION
  Report Type: 
  Country: None (occurrence: None)
  Receive Date: 20080924
  Receipt Date: 20080924
  Transmission Date: 20090109
  Serious: No
  Sender: FDA-Public Use
  Company Number: None

PATIENT
  Age: 59 Year
  Sex: Female
  Weight: 55.7924 kg

DRUGS (1)
  1. NASONEX [Suspect]
     Indication: RHINITIS ALLERGIC
     Dosage: 1 SPRAY IN EACH NOSTRIL AT NIGHT NASAL
     Route: 045
     Dates: start: 20080920, end: 20080922

REACTIONS (2)
  - GASTRIC DISORDER [None]
  - MIDDLE INSOMNIA [None]
